FAERS Safety Report 6104814-1 (Version None)
Quarter: 2009Q1

REPORT INFORMATION
  Report Type: 
  Country: None (occurrence: None)
  Receive Date: 20090306
  Receipt Date: 20090302
  Transmission Date: 20090719
  Serious: Yes (Death)
  Sender: FDA-Public Use
  Company Number: PH-JNJFOC-20090300122

PATIENT
  Age: 18 Year
  Sex: Female

DRUGS (1)
  1. DORIBAX [Suspect]
     Indication: PNEUMONIA
     Route: 042

REACTIONS (2)
  - ACUTE RESPIRATORY FAILURE [None]
  - RESPIRATORY FAILURE [None]
